FAERS Safety Report 21700534 (Version 1)
Quarter: 2022Q4

REPORT INFORMATION
  Report Type: Report from Study
  Country: US (occurrence: US)
  Receive Date: 20221208
  Receipt Date: 20221208
  Transmission Date: 20230112
  Serious: Yes (Other)
  Sender: FDA-Public Use
  Company Number: US-ABBVIE-4227812

PATIENT
  Sex: Female

DRUGS (1)
  1. HUMIRA [Suspect]
     Active Substance: ADALIMUMAB
     Indication: Product used for unknown indication
     Dosage: CITRATE FREE
     Route: 058

REACTIONS (5)
  - Tonsillectomy [Recovering/Resolving]
  - Urinary tract infection [Unknown]
  - Influenza [Recovering/Resolving]
  - Ear infection [Recovering/Resolving]
  - Streptococcal infection [Recovering/Resolving]
